FAERS Safety Report 13037502 (Version 1)
Quarter: 2016Q4

REPORT INFORMATION
  Report Type: Report from Study
  Country: US (occurrence: US)
  Receive Date: 20161217
  Receipt Date: 20161217
  Transmission Date: 20170207
  Serious: Yes (Death)
  Sender: FDA-Public Use
  Company Number: PHEH2016US032733

PATIENT
  Sex: Male

DRUGS (2)
  1. MEKINIST [Suspect]
     Active Substance: TRAMETINIB DIMETHYL SULFOXIDE
     Indication: HAIRY CELL LEUKAEMIA
     Dosage: 2 MG, QD
     Route: 048
     Dates: start: 20160511
  2. TAFINLAR [Suspect]
     Active Substance: DABRAFENIB MESYLATE
     Indication: HAIRY CELL LEUKAEMIA
     Dosage: 75 MG, BID
     Route: 048
     Dates: start: 20160511

REACTIONS (2)
  - Death [Fatal]
  - Product use issue [Unknown]
